FAERS Safety Report 9473666 (Version 1)
Quarter: 2013Q3

REPORT INFORMATION
  Report Type: Spontaneous
  Country: US (occurrence: US)
  Receive Date: 20130823
  Receipt Date: 20130823
  Transmission Date: 20140515
  Serious: Yes (Other)
  Sender: FDA-Public Use
  Company Number: US-BAYER-2013-101299

PATIENT
  Sex: Female

DRUGS (1)
  1. ALEVE CAPLET [Suspect]
     Indication: INFLAMMATION
     Dosage: 2 DF, QID

REACTIONS (5)
  - Urticaria [Recovered/Resolved]
  - Wheezing [Recovered/Resolved]
  - Overdose [None]
  - Drug hypersensitivity [None]
  - Drug prescribing error [None]
